FAERS Safety Report 9258617 (Version 2)
Quarter: 2014Q4

REPORT INFORMATION
  Report Type: Spontaneous
  Country: US (occurrence: US)
  Receive Date: 20130426
  Receipt Date: 20141010
  Transmission Date: 20150529
  Serious: No
  Sender: FDA-Public Use
  Company Number: US-009507513-1304USA015579

PATIENT
  Sex: Female
  Weight: 116.55 kg

DRUGS (2)
  1. NUVARING [Suspect]
     Active Substance: ETHINYL ESTRADIOL\ETONOGESTREL
     Indication: POLYMENORRHOEA
  2. NUVARING [Suspect]
     Active Substance: ETHINYL ESTRADIOL\ETONOGESTREL
     Indication: CONTRACEPTION
     Dosage: UNK
     Route: 067
     Dates: start: 201012, end: 201103

REACTIONS (4)
  - Thrombophlebitis [Unknown]
  - Premenstrual dysphoric disorder [Unknown]
  - Metrorrhagia [Unknown]
  - Headache [Unknown]

NARRATIVE: CASE EVENT DATE: 201101
